FAERS Safety Report 10082457 (Version 3)
Quarter: 2014Q2

REPORT INFORMATION
  Report Type: Spontaneous
  Country: BR (occurrence: BR)
  Receive Date: 20140416
  Receipt Date: 20140521
  Transmission Date: 20141212
  Serious: Yes (Other)
  Sender: FDA-Public Use
  Company Number: PHHY2014BR046380

PATIENT
  Age: 76 Year
  Sex: Female
  Weight: 47 kg

DRUGS (2)
  1. EXELON PATCH [Suspect]
     Indication: DEMENTIA ALZHEIMER^S TYPE
     Dosage: 4.6 MG (5 CM), DAILY
     Route: 062
     Dates: start: 201401, end: 20140405
  2. EXELON PATCH [Suspect]
     Dosage: 9.5 MG (10 CM2), DAILY
     Route: 062
     Dates: start: 20140406

REACTIONS (5)
  - Blood pressure decreased [Recovered/Resolved]
  - Blood pressure increased [Recovered/Resolved]
  - Vomiting [Recovered/Resolved]
  - Dizziness [Not Recovered/Not Resolved]
  - Headache [Not Recovered/Not Resolved]
